FAERS Safety Report 16249485 (Version 1)
Quarter: 2019Q2

REPORT INFORMATION
  Report Type: Spontaneous
  Country: RU (occurrence: RU)
  Receive Date: 20190429
  Receipt Date: 20190429
  Transmission Date: 20190711
  Serious: Yes (Other)
  Sender: FDA-Public Use
  Company Number: RU-SA-2019SA114294

PATIENT
  Age: 46 Year

DRUGS (12)
  1. MOZOBIL [Suspect]
     Active Substance: PLERIXAFOR
     Dosage: UNK UNIT: UG/KG
     Route: 065
  2. FLUDARABINE PHOSPHATE. [Suspect]
     Active Substance: FLUDARABINE PHOSPHATE
     Dosage: 50 MG/M2, QD
     Route: 065
  3. MYLERAN [Suspect]
     Active Substance: BUSULFAN
     Indication: BONE MARROW CONDITIONING REGIMEN
     Dosage: 50 MG/M2, QD
     Route: 065
  4. MYLERAN [Suspect]
     Active Substance: BUSULFAN
     Dosage: UNK UNIT: MG/KG
     Route: 065
  5. CAMPATH [Concomitant]
     Active Substance: ALEMTUZUMAB
     Indication: PROPHYLAXIS AGAINST GRAFT VERSUS HOST DISEASE
  6. FLUDARABINE PHOSPHATE. [Suspect]
     Active Substance: FLUDARABINE PHOSPHATE
     Indication: BONE MARROW CONDITIONING REGIMEN
     Dosage: UNK UNIT: MG/KG
     Route: 065
  7. MOZOBIL [Suspect]
     Active Substance: PLERIXAFOR
     Dosage: UNK UNIT: MG/KG
     Route: 065
  8. MYCOPHENOLATE MOFETIL. [Concomitant]
     Active Substance: MYCOPHENOLATE MOFETIL
     Indication: PROPHYLAXIS AGAINST GRAFT VERSUS HOST DISEASE
  9. MOZOBIL [Suspect]
     Active Substance: PLERIXAFOR
     Indication: BONE MARROW CONDITIONING REGIMEN
     Dosage: 50 MG/M2, QD
     Route: 065
  10. MYLERAN [Suspect]
     Active Substance: BUSULFAN
     Dosage: UNK UNIT: UG/KG
     Route: 065
  11. FLUDARABINE PHOSPHATE. [Suspect]
     Active Substance: FLUDARABINE PHOSPHATE
     Dosage: UNK UNIT:: UG/KG
     Route: 065
  12. CYCLOSPORINE. [Concomitant]
     Active Substance: CYCLOSPORINE
     Indication: PROPHYLAXIS AGAINST GRAFT VERSUS HOST DISEASE

REACTIONS (3)
  - Product use in unapproved indication [Unknown]
  - Febrile neutropenia [Unknown]
  - Mucosal inflammation [Unknown]
